FAERS Safety Report 17923983 (Version 1)
Quarter: 2020Q2

REPORT INFORMATION
  Report Type: Spontaneous
  Country: US (occurrence: US)
  Receive Date: 20200622
  Receipt Date: 20200622
  Transmission Date: 20200714
  Serious: Yes (Hospitalization)
  Sender: FDA-Public Use
  Company Number: None

PATIENT
  Age: 80 Year
  Sex: Female
  Weight: 48.6 kg

DRUGS (5)
  1. BACTRIM [Suspect]
     Active Substance: SULFAMETHOXAZOLE\TRIMETHOPRIM
     Indication: URINARY TRACT INFECTION
     Route: 048
     Dates: start: 20200531, end: 20200606
  2. MEMANTINE. [Suspect]
     Active Substance: MEMANTINE
     Indication: DEMENTIA ALZHEIMER^S TYPE
     Route: 048
     Dates: start: 20180101, end: 20200608
  3. LAMICTAL [Concomitant]
     Active Substance: LAMOTRIGINE
     Dates: start: 20200521, end: 20200606
  4. CITALOPRAM [Concomitant]
     Active Substance: CITALOPRAM HYDROBROMIDE
     Dates: start: 20130601
  5. DONEPEZIL. [Concomitant]
     Active Substance: DONEPEZIL
     Dates: start: 20110601

REACTIONS (9)
  - Pyrexia [None]
  - Somnolence [None]
  - Myoclonus [None]
  - Urticaria [None]
  - Dry mouth [None]
  - Dysarthria [None]
  - Seizure [None]
  - Confusional state [None]
  - Pruritus [None]

NARRATIVE: CASE EVENT DATE: 20200606
